FAERS Safety Report 5867261-3 (Version None)
Quarter: 2008Q3

REPORT INFORMATION
  Report Type: 
  Country: None (occurrence: None)
  Receive Date: 20080902
  Receipt Date: 20080818
  Transmission Date: 20090109
  Serious: Yes (Disabling)
  Sender: FDA-Public Use
  Company Number: JP-ASTRAZENECA-2008SE04130

PATIENT
  Age: 69 Year
  Sex: Female

DRUGS (4)
  1. AMIAS [Suspect]
     Indication: HYPERTENSION
     Route: 048
     Dates: start: 20070801, end: 20071001
  2. BENDROFLUMETHIAZIDE [Concomitant]
     Indication: HYPERTENSION
     Route: 048
  3. SERETIDE [Concomitant]
     Indication: ASTHMA
     Route: 055
  4. VENTOLIN [Concomitant]
     Indication: ASTHMA
     Route: 055

REACTIONS (5)
  - ECZEMA [None]
  - GENERALISED ERYTHEMA [None]
  - RASH PAPULAR [None]
  - URTICARIA [None]
  - VASCULITIS [None]
